FAERS Safety Report 11205753 (Version 2)
Quarter: 2015Q3

REPORT INFORMATION
  Report Type: Spontaneous
  Country: US (occurrence: US)
  Receive Date: 20150622
  Receipt Date: 20150723
  Transmission Date: 20151125
  Serious: Yes (Hospitalization)
  Sender: FDA-Public Use
  Company Number: US-BAYER-2015-334962

PATIENT
  Age: 35 Year
  Sex: Female

DRUGS (3)
  1. HYDROCHLOROTHIAZIDE. [Concomitant]
     Active Substance: HYDROCHLOROTHIAZIDE
  2. MIRENA [Suspect]
     Active Substance: LEVONORGESTREL
     Indication: CONTRACEPTION
     Dosage: 20 MCG/24HR, CONT
     Route: 015
     Dates: start: 20120712, end: 20121212
  3. METOPROLOL [Concomitant]
     Active Substance: METOPROLOL

REACTIONS (12)
  - Depression [None]
  - Emotional distress [None]
  - Vaginal haemorrhage [None]
  - Post procedural discomfort [None]
  - Embedded device [None]
  - Injury [None]
  - Abdominal discomfort [None]
  - Pain [None]
  - Abdominal pain upper [None]
  - Abdominal pain [None]
  - Procedural pain [None]
  - Dyspareunia [None]

NARRATIVE: CASE EVENT DATE: 2012
